FAERS Safety Report 19795723 (Version 7)
Quarter: 2023Q2

REPORT INFORMATION
  Report Type: Report from Study
  Country: DE (occurrence: None)
  Receive Date: 20210907
  Receipt Date: 20230406
  Transmission Date: 20230722
  Serious: Yes (Hospitalization)
  Sender: FDA-Public Use
  Company Number: DE-ROCHE-2904752

PATIENT
  Age: 65 Year
  Sex: Male
  Weight: 93 kg

DRUGS (12)
  1. TIRAGOLUMAB [Suspect]
     Active Substance: TIRAGOLUMAB
     Indication: Lung neoplasm malignant
     Dosage: START DATE OF MOST RECENT DOSE OF STUDY DRUG PRIOR TO AE 05/AUG/2021 AT THE DOSE OF 840 MG
     Route: 042
     Dates: start: 20210805
  2. ATEZOLIZUMAB [Suspect]
     Active Substance: ATEZOLIZUMAB
     Indication: Lung neoplasm malignant
     Dosage: START DATE OF MOST RECENT DOSE OF STUDY DRUG PRIOR TO SAE 05/AUG/2021 AT THE DOSE OF 1680 MG.
     Route: 041
     Dates: start: 20210805
  3. TORSEMIDE [Concomitant]
     Active Substance: TORSEMIDE
     Indication: Oedema peripheral
     Route: 048
     Dates: start: 20210723, end: 20210728
  4. VINORELBINE [Concomitant]
     Active Substance: VINORELBINE TARTRATE
     Dosage: PRIOR CANCER THERAPY
     Dates: start: 20210607, end: 20210713
  5. CISPLATIN [Concomitant]
     Active Substance: CISPLATIN
     Dosage: PRIOR CANCER THERAPY
     Dates: start: 20210607, end: 20210713
  6. PANTOZOL [Concomitant]
     Active Substance: PANTOPRAZOLE SODIUM
     Route: 048
     Dates: start: 20210903, end: 20210909
  7. AMPHOTERICIN B [Concomitant]
     Active Substance: AMPHOTERICIN B
     Route: 048
     Dates: start: 20210903, end: 20210922
  8. DALTEPARINNATRIUM [Concomitant]
     Dosage: 5000 OTHER
     Route: 030
     Dates: start: 20210902, end: 20210909
  9. PREDNISOLONE [Concomitant]
     Active Substance: PREDNISOLONE
     Route: 048
     Dates: start: 20210903, end: 20210922
  10. INSULIN NOS [Concomitant]
     Active Substance: INSULIN NOS
     Indication: Hyperglycaemia
     Dosage: 6 OTHER
     Route: 058
     Dates: start: 20210903, end: 20210906
  11. LEVOTHYROXINE SODIUM [Concomitant]
     Active Substance: LEVOTHYROXINE SODIUM
     Indication: Hypothyroidism
     Route: 048
     Dates: start: 20210924
  12. IBUPROFEN [Concomitant]
     Active Substance: IBUPROFEN
     Indication: Skin burning sensation
     Route: 048
     Dates: start: 202108, end: 20210901

REACTIONS (1)
  - Bronchitis [Recovered/Resolved]

NARRATIVE: CASE EVENT DATE: 20210902
